FAERS Safety Report 4747225-3 (Version None)
Quarter: 2005Q3

REPORT INFORMATION
  Report Type: 
  Country: None (occurrence: None)
  Receive Date: 20050815
  Receipt Date: 20050809
  Transmission Date: 20060218
  Serious: Yes (Hospitalization)
  Sender: FDA-Public Use
  Company Number: 2005113042

PATIENT
  Age: 60 Year
  Sex: Female
  Weight: 72.5755 kg

DRUGS (12)
  1. LIPITOR [Suspect]
     Indication: BLOOD CHOLESTEROL INCREASED
     Dosage: 20 MG (20 MG, 1 IN 1 D)
     Dates: start: 20050501, end: 20050701
  2. ATACAND [Concomitant]
  3. METOPROLOL TARTRATE [Concomitant]
  4. POTASSIUM CHLORIDE [Concomitant]
  5. ACETYLSALICYLIC ACID SRT [Concomitant]
  6. RANITIDINE HCL [Concomitant]
  7. LASIX [Concomitant]
  8. TRAZODONE (TRAZODONE) [Concomitant]
  9. AMITRIPTYLINE HCL [Concomitant]
  10. EVOXAC [Concomitant]
  11. PLAVIX [Concomitant]
  12. LEXPARO (ESCITALOPRAM) [Concomitant]

REACTIONS (7)
  - BLOOD CHOLESTEROL INCREASED [None]
  - CEREBROSPINAL FLUID LEAKAGE [None]
  - MUSCLE SPASMS [None]
  - PAIN IN EXTREMITY [None]
  - POST PROCEDURAL COMPLICATION [None]
  - SCAR [None]
  - SHOULDER PAIN [None]
